FAERS Safety Report 9461301 (Version 1)
Quarter: 2013Q3

REPORT INFORMATION
  Report Type: Spontaneous
  Country: US (occurrence: None)
  Receive Date: 20130814
  Receipt Date: 20130814
  Transmission Date: 20140515
  Serious: Yes (Other)
  Sender: FDA-Public Use
  Company Number: None

PATIENT
  Age: 59 Year
  Sex: Male
  Weight: 107.5 kg

DRUGS (2)
  1. FLAGYL [Suspect]
     Indication: CLOSTRIDIUM DIFFICILE INFECTION
     Dosage: 500 MG. 1 EVERY 8 HRS. 3 TIMES DAY IV THEN BY MOUTH AT HOME.
     Dates: start: 20130514, end: 20130524
  2. FLAGYL [Suspect]
     Indication: MEGACOLON
     Dosage: 500 MG. 1 EVERY 8 HRS. 3 TIMES DAY IV THEN BY MOUTH AT HOME.
     Dates: start: 20130514, end: 20130524

REACTIONS (3)
  - Hypoaesthesia [None]
  - Feeling abnormal [None]
  - Deafness [None]
